FAERS Safety Report 20415795 (Version 1)
Quarter: 2022Q1

REPORT INFORMATION
  Report Type: Spontaneous
  Country: US (occurrence: US)
  Receive Date: 20220202
  Receipt Date: 20220202
  Transmission Date: 20220423
  Serious: Yes (Other)
  Sender: FDA-Public Use
  Company Number: US-BAYER-2022A013824

PATIENT
  Age: 30 Year
  Sex: Female

DRUGS (1)
  1. SKYLA [Suspect]
     Active Substance: LEVONORGESTREL
     Indication: Contraception
     Dosage: 14?G/DAY
     Route: 015
     Dates: start: 20150113, end: 20211227

REACTIONS (2)
  - Complication of device removal [Recovering/Resolving]
  - Device use issue [None]

NARRATIVE: CASE EVENT DATE: 20180113
